FAERS Safety Report 8622631-5 (Version None)
Quarter: 2012Q3

REPORT INFORMATION
  Report Type: 
  Country: None (occurrence: None)
  Receive Date: 20120827
  Receipt Date: 20120815
  Transmission Date: 20120928
  Serious: Yes (Other)
  Sender: FDA-Public Use
  Company Number: US-JNJFOC-20120809476

PATIENT
  Sex: Female
  Weight: 65.77 kg

DRUGS (4)
  1. REMICADE [Suspect]
     Indication: CROHN'S DISEASE
     Route: 042
     Dates: start: 20060601
  2. ALL OTHER THERAPEUTICS [Concomitant]
     Indication: CONTRACEPTION
     Route: 065
  3. REMICADE [Suspect]
     Route: 042
     Dates: start: 20120101
  4. REMICADE [Suspect]
     Route: 042
     Dates: start: 20110101

REACTIONS (4)
  - DEPRESSION [None]
  - RASH [None]
  - ORAL DISCOMFORT [None]
  - PITYRIASIS ROSEA [None]
